FAERS Safety Report 9314140 (Version 2)
Quarter: 2013Q3

REPORT INFORMATION
  Report Type: Spontaneous
  Country: DE (occurrence: DE)
  Receive Date: 20130529
  Receipt Date: 20130705
  Transmission Date: 20140515
  Serious: Yes (Hospitalization)
  Sender: FDA-Public Use
  Company Number: DE-JNJFOC-20130509710

PATIENT
  Age: 59 Year
  Sex: Female
  Weight: 115 kg

DRUGS (1)
  1. STELARA [Suspect]
     Indication: PSORIASIS
     Route: 058
     Dates: start: 201303, end: 201304

REACTIONS (4)
  - Anaemia [Not Recovered/Not Resolved]
  - Leukopenia [Not Recovered/Not Resolved]
  - Bone marrow myelogram abnormal [Not Recovered/Not Resolved]
  - General physical health deterioration [Recovering/Resolving]
